FAERS Safety Report 14656389 (Version 2)
Quarter: 2018Q1

REPORT INFORMATION
  Report Type: Report from Study
  Country: AT (occurrence: AT)
  Receive Date: 20180319
  Receipt Date: 20180329
  Transmission Date: 20180509
  Serious: Yes (Hospitalization)
  Sender: FDA-Public Use
  Company Number: AT-TAKEDA-2018MPI002605

PATIENT
  Age: 78 Year
  Sex: Female
  Weight: 74.5 kg

DRUGS (2)
  1. IXAZOMIB [Suspect]
     Active Substance: IXAZOMIB
     Indication: TRIPLE NEGATIVE BREAST CANCER
     Dosage: 4 MG, UNK
     Route: 048
     Dates: start: 20180223, end: 20180309
  2. CARBOPLATIN. [Suspect]
     Active Substance: CARBOPLATIN
     Indication: TRIPLE NEGATIVE BREAST CANCER
     Dosage: 180 MG, UNK
     Route: 042
     Dates: start: 20180223, end: 20180309

REACTIONS (1)
  - Escherichia bacteraemia [Recovered/Resolved]

NARRATIVE: CASE EVENT DATE: 20180310
